FAERS Safety Report 5667449-0 (Version None)
Quarter: 2008Q1

REPORT INFORMATION
  Report Type: 
  Country: None (occurrence: None)
  Receive Date: 20080315
  Receipt Date: 20080123
  Transmission Date: 20080703
  Serious: No
  Sender: FDA-Public Use
  Company Number: US-ABBOTT-08P-163-0434839-00

PATIENT
  Sex: Female
  Weight: 59.02 kg

DRUGS (4)
  1. HUMIRA [Suspect]
     Indication: CROHN'S DISEASE
     Route: 058
     Dates: start: 20070901
  2. SIMVASTATIN [Suspect]
     Indication: BLOOD CHOLESTEROL INCREASED
     Dates: end: 20071201
  3. LIALDA [Concomitant]
     Indication: CROHN'S DISEASE
     Route: 048
  4. TOPIRAMATE [Concomitant]
     Indication: MIGRAINE
     Route: 048

REACTIONS (2)
  - ARTHRALGIA [None]
  - FEELING COLD [None]
